FAERS Safety Report 15443976 (Version 1)
Quarter: 2018Q4

REPORT INFORMATION
  Report Type: Spontaneous
  Country: US (occurrence: US)
  Receive Date: 20180928
  Receipt Date: 20180928
  Transmission Date: 20190204
  Serious: Yes (Other)
  Sender: FDA-Public Use
  Company Number: US-BAYER-2018-181263

PATIENT
  Sex: Male

DRUGS (2)
  1. COPPERTONE SPF 8 [Suspect]
     Active Substance: OCTINOXATE\OCTOCRYLENE
     Indication: THERAPEUTIC SKIN CARE TOPICAL
     Dosage: UNK
     Route: 061
  2. COPPERTONE SPF 4 [Suspect]
     Active Substance: OCTINOXATE\OCTOCRYLENE
     Indication: THERAPEUTIC SKIN CARE TOPICAL
     Dosage: UNK
     Route: 061

REACTIONS (2)
  - Cerebrovascular accident [Unknown]
  - Expired product administered [Unknown]
